FAERS Safety Report 10182671 (Version 1)
Quarter: 2014Q2

REPORT INFORMATION
  Report Type: Spontaneous
  Country: US (occurrence: None)
  Receive Date: 20140519
  Receipt Date: 20140519
  Transmission Date: 20141212
  Serious: Yes (Life-Threatening, Hospitalization, Other)
  Sender: FDA-Public Use
  Company Number: None

PATIENT
  Age: 26 Year
  Sex: Female

DRUGS (8)
  1. METHADONE HYDROCHLORIDE 10 MG ROXEN [Suspect]
     Indication: PAIN
     Dosage: TAKEN BY MOUTH
     Dates: start: 20131029, end: 20140517
  2. LYRICA [Concomitant]
  3. METHADONE [Concomitant]
  4. MULTIVITAMINS [Concomitant]
  5. VITAMIN C WITH ROSE HIPS [Concomitant]
  6. LYSINE VITAMINS [Concomitant]
  7. ENCHINACEA [Concomitant]
  8. VALERIAN ROOT [Concomitant]

REACTIONS (3)
  - Drug dependence [None]
  - Intentional overdose [None]
  - Amnesia [None]
